FAERS Safety Report 17111522 (Version 2)
Quarter: 2019Q4

REPORT INFORMATION
  Report Type: Spontaneous
  Country: IE (occurrence: IE)
  Receive Date: 20191204
  Receipt Date: 20191206
  Transmission Date: 20200122
  Serious: Yes (Life-Threatening, Other)
  Sender: FDA-Public Use
  Company Number: IE-MYLANLABS-2019M1117333

PATIENT
  Age: 69 Year
  Sex: Female

DRUGS (7)
  1. IMODIUM [Interacting]
     Active Substance: LOPERAMIDE HYDROCHLORIDE
     Indication: GASTROINTESTINAL STOMA COMPLICATION
     Dosage: DURATION OF USE; AT LEAST 5 WEEKS AS IN-PATIENT, PROBABLY ADMITTED ON THIS TREATMENT
     Route: 048
     Dates: end: 20190611
  2. LOPERAMIDE [Interacting]
     Active Substance: LOPERAMIDE
     Indication: GASTROINTESTINAL STOMA COMPLICATION
     Dosage: TAKING THIS FOR 5 WEEKS PRECEDING THE EVENT POSSIBLY ADMITTED ON THIS THERAPY
     Route: 048
     Dates: end: 20190611
  3. KLACID IV [Suspect]
     Active Substance: CLARITHROMYCIN
     Indication: PRODUCT USED FOR UNKNOWN INDICATION
     Dosage: 500 MILLIGRAM, BID
     Route: 042
     Dates: start: 20190601, end: 20190605
  4. CODEINE [Concomitant]
     Active Substance: CODEINE
     Indication: GASTROINTESTINAL STOMA COMPLICATION
     Dosage: 30 MILLIGRAM, Q8H
     Route: 065
     Dates: start: 20190519
  5. CODEINE [Concomitant]
     Active Substance: CODEINE
     Dosage: DOSE INCREASED
     Route: 065
     Dates: start: 20190523
  6. CLARITHROMYCIN. [Suspect]
     Active Substance: CLARITHROMYCIN
     Indication: PNEUMONIA
     Dosage: 500 MILLIGRAM, BID
     Route: 065
     Dates: start: 20190605, end: 20190611
  7. CODEINE [Concomitant]
     Active Substance: CODEINE
     Dosage: DOSE INCREASED
     Route: 065
     Dates: start: 20190520

REACTIONS (5)
  - Ventricular fibrillation [Recovered/Resolved]
  - Cardiac arrest [Recovered/Resolved]
  - Drug interaction [Recovered/Resolved]
  - Torsade de pointes [Recovered/Resolved]
  - Hypertension [Unknown]

NARRATIVE: CASE EVENT DATE: 20190611
